FAERS Safety Report 8303375-6 (Version None)
Quarter: 2012Q2

REPORT INFORMATION
  Report Type: 
  Country: None (occurrence: None)
  Receive Date: 20120423
  Receipt Date: 20120412
  Transmission Date: 20120825
  Serious: No
  Sender: FDA-Public Use
  Company Number: US-BIOGENIDEC-2012BI012766

PATIENT
  Age: 52 Year
  Sex: Female

DRUGS (3)
  1. AVONEX [Suspect]
     Indication: MULTIPLE SCLEROSIS
     Route: 030
  2. AVONEX [Suspect]
     Route: 030
     Dates: start: 20080401
  3. AVONEX [Suspect]
     Route: 030
     Dates: start: 20010301, end: 20080101

REACTIONS (3)
  - AMNESIA [None]
  - MULTIPLE SCLEROSIS RELAPSE [None]
  - CONTUSION [None]
